FAERS Safety Report 8926570 (Version 4)
Quarter: 2013Q1

REPORT INFORMATION
  Report Type: Spontaneous
  Country: JP (occurrence: JP)
  Receive Date: 20121127
  Receipt Date: 20130318
  Transmission Date: 20140127
  Serious: Yes (Other)
  Sender: FDA-Public Use
  Company Number: JP-PFIZER INC-2012291040

PATIENT
  Age: 54 Year
  Sex: Female
  Weight: 64.8 kg

DRUGS (2)
  1. LIPITOR [Suspect]
     Indication: HYPERCHOLESTEROLAEMIA
     Dosage: 10 MG, 1X/DAY
     Route: 048
     Dates: start: 20110125, end: 20120818
  2. NATRIX [Concomitant]
     Indication: HYPERTENSION
     Dosage: UNK
     Dates: start: 20110125

REACTIONS (1)
  - Sjogren^s syndrome [Not Recovered/Not Resolved]
